FAERS Safety Report 23314885 (Version 2)
Quarter: 2024Q1

REPORT INFORMATION
  Report Type: Spontaneous
  Country: US (occurrence: US)
  Receive Date: 20231219
  Receipt Date: 20240307
  Transmission Date: 20240410
  Serious: Yes (Other)
  Sender: FDA-Public Use
  Company Number: US-TEVA-VS-3136096

PATIENT
  Age: 56 Year
  Sex: Female

DRUGS (5)
  1. PACLITAXEL [Suspect]
     Active Substance: PACLITAXEL
     Indication: Ovarian cancer stage III
     Dosage: RECEIVED TOTAL OF 6 CYCLES
     Route: 065
  2. CARBOPLATIN [Suspect]
     Active Substance: CARBOPLATIN
     Indication: Ovarian cancer stage III
     Dosage: RECEIVED TOTAL OF 6 CYCLES
     Route: 065
  3. BEVACIZUMAB [Concomitant]
     Active Substance: BEVACIZUMAB
     Indication: Ovarian cancer stage III
     Route: 065
  4. VELIPARIB [Suspect]
     Active Substance: VELIPARIB
     Indication: Ovarian cancer stage II
     Dosage: RECEIVED TOTAL OF 6 CYCLES
     Route: 065
  5. AVELUMAB [Suspect]
     Active Substance: AVELUMAB
     Indication: Ovarian cancer stage II
     Route: 065

REACTIONS (3)
  - Drug ineffective [Unknown]
  - Anaemia [Unknown]
  - Thrombotic microangiopathy [Recovering/Resolving]
